FAERS Safety Report 21721032 (Version 1)
Quarter: 2022Q4

REPORT INFORMATION
  Report Type: Spontaneous
  Country: US (occurrence: None)
  Receive Date: 20221212
  Receipt Date: 20221212
  Transmission Date: 20230112
  Serious: No
  Sender: FDA-Public Use
  Company Number: None

PATIENT
  Age: 72 Year
  Sex: Male

DRUGS (1)
  1. INSULIN ASPART [Suspect]
     Active Substance: INSULIN ASPART
     Indication: Diabetes mellitus
     Dosage: OTHER STRENGTH : 100/3 U/ML/ML;?
     Dates: start: 20180426, end: 20180517

REACTIONS (1)
  - Headache [None]

NARRATIVE: CASE EVENT DATE: 20180611
